FAERS Safety Report 24750711 (Version 1)
Quarter: 2024Q4

REPORT INFORMATION
  Report Type: Spontaneous
  Country: GR (occurrence: GR)
  Receive Date: 20241218
  Receipt Date: 20241218
  Transmission Date: 20250115
  Serious: Yes (Other)
  Sender: CELLTRION
  Company Number: GR-PFIZER INC-PV202400076359

PATIENT

DRUGS (7)
  1. RITUXIMAB [Suspect]
     Active Substance: RITUXIMAB
     Indication: Product used for unknown indication
  2. METHOTREXATE SODIUM [Suspect]
     Active Substance: METHOTREXATE SODIUM
     Indication: Rheumatoid arthritis
  3. HUMALOG [Concomitant]
     Active Substance: INSULIN LISPRO
     Dosage: INJ
  4. DAPAGLIFLOZIN [Concomitant]
     Active Substance: DAPAGLIFLOZIN
     Dosage: 10 MG
  5. TRIACOR [Concomitant]
     Dosage: 5/5 MG
  6. VILDAGLIPTIN [Concomitant]
     Active Substance: VILDAGLIPTIN
     Dosage: 50 MG, 1X1
  7. TOUJEO [Concomitant]
     Active Substance: INSULIN GLARGINE
     Dosage: INJ

REACTIONS (6)
  - Rheumatoid arthritis [Unknown]
  - Pulmonary fibrosis [Unknown]
  - NYHA classification [Unknown]
  - Dyspnoea [Unknown]
  - Tremor [Unknown]
  - Drug ineffective [Unknown]
